FAERS Safety Report 9574944 (Version 2)
Quarter: 2013Q4

REPORT INFORMATION
  Report Type: Report from Study
  Country: FR (occurrence: FR)
  Receive Date: 20131001
  Receipt Date: 20131016
  Transmission Date: 20140711
  Serious: Yes (Hospitalization)
  Sender: FDA-Public Use
  Company Number: FR-ROCHE-1279296

PATIENT
  Age: 40 Year
  Sex: Female
  Weight: 64 kg

DRUGS (8)
  1. TRASTUZUMAB [Suspect]
     Indication: BREAST CANCER
     Dosage: LOADING DOSE. LAST DOSE PRIOR TO FIRST EPISODE: 10/SEP/2013.
     Route: 042
     Dates: start: 20130910, end: 20130910
  2. TRASTUZUMAB [Suspect]
     Dosage: MAINTANENCE DOSE
     Route: 042
  3. 5-FU [Suspect]
     Indication: BREAST CANCER
     Dosage: LAST DOSE PRIOR TO THE EVENT: 19/AUG/2013.
     Route: 042
     Dates: start: 20130704, end: 20130819
  4. EPIRUBICIN [Suspect]
     Indication: BREAST CANCER
     Dosage: LAST DOSE PRIOR TO THE EVENT: 19/AUG/2013.
     Route: 042
     Dates: start: 20130704, end: 20130819
  5. CYCLOPHOSPHAMIDE [Suspect]
     Indication: BREAST CANCER
     Dosage: LAST DOSE PRIOR TO THE EVENT: 19/AUG/2013.
     Route: 042
     Dates: start: 20130704, end: 20130819
  6. DOCETAXEL [Suspect]
     Indication: BREAST CANCER
     Dosage: LAST DOSE PRIOR TO THE EVENT: 11/SEP/2013
     Route: 042
     Dates: start: 20130911
  7. SUBUTEX [Concomitant]
     Route: 065
  8. PLACEBO [Suspect]
     Indication: BREAST CANCER
     Dosage: LAST DOSE PRIOR TO THE EVENT: 10/SEP/2013.
     Route: 042
     Dates: start: 20130910

REACTIONS (1)
  - Chest pain [Not Recovered/Not Resolved]
